FAERS Safety Report 15526189 (Version 5)
Quarter: 2019Q4

REPORT INFORMATION
  Report Type: Spontaneous
  Country: US (occurrence: US)
  Receive Date: 20181018
  Receipt Date: 20191101
  Transmission Date: 20200122
  Serious: Yes (Other)
  Sender: FDA-Public Use
  Company Number: US-ASTRAZENECA-2018SF31509

PATIENT
  Age: 26620 Day
  Sex: Female
  Weight: 93.3 kg

DRUGS (39)
  1. NEXIUM [Suspect]
     Active Substance: ESOMEPRAZOLE MAGNESIUM
     Route: 048
     Dates: start: 2001, end: 2002
  2. NEXIUM [Suspect]
     Active Substance: ESOMEPRAZOLE MAGNESIUM
     Dosage: 40.0MG UNKNOWN
     Route: 048
     Dates: start: 200108, end: 200205
  3. FLUVIRIN NOS [Concomitant]
     Active Substance: INFLUENZA VIRUS VACCINE
  4. FLUZONE [Concomitant]
     Active Substance: INFLUENZA A VIRUS A/CALIFORNIA/7/2009 X-179A (H1N1) ANTIGEN (FORMALDEHYDE INACTIVATED)\INFLUENZA A VIRUS A/VICTORIA/210/2009 X-187 (H3N2) ANTIGEN (FORMALDEHYDE INACTIVATED)\INFLUENZA B VIRUS B/BRISBANE/60/2008 ANTIGEN (FORMALDEHYDE INACTIVATED)
  5. NYSTATIN. [Concomitant]
     Active Substance: NYSTATIN
  6. TAGAMET [Concomitant]
     Active Substance: CIMETIDINE
  7. NEXIUM [Suspect]
     Active Substance: ESOMEPRAZOLE MAGNESIUM
     Dosage: UNKNOWN
     Route: 048
     Dates: start: 2009, end: 2014
  8. FENOFIBRATE. [Concomitant]
     Active Substance: FENOFIBRATE
  9. FENOFIBRATE. [Concomitant]
     Active Substance: FENOFIBRATE
  10. ZOCOR [Concomitant]
     Active Substance: SIMVASTATIN
  11. ROPINIROLE. [Concomitant]
     Active Substance: ROPINIROLE
  12. ASPIRIN. [Concomitant]
     Active Substance: ASPIRIN
  13. LISINOPRIL. [Concomitant]
     Active Substance: LISINOPRIL
  14. ZETIA [Concomitant]
     Active Substance: EZETIMIBE
  15. VITAMIN D [Concomitant]
     Active Substance: VITAMIN D NOS
  16. LIVALO [Concomitant]
     Active Substance: PITAVASTATIN CALCIUM
  17. NEXIUM [Suspect]
     Active Substance: ESOMEPRAZOLE MAGNESIUM
     Dosage: 40.0MG UNKNOWN
     Route: 048
     Dates: start: 201411
  18. CIPROFLOXACIN. [Concomitant]
     Active Substance: CIPROFLOXACIN
  19. JANUMET [Concomitant]
     Active Substance: METFORMIN HYDROCHLORIDE\SITAGLIPTIN PHOSPHATE
  20. GLUCOPHAGE [Concomitant]
     Active Substance: METFORMIN HYDROCHLORIDE
  21. LOVASTATIN. [Concomitant]
     Active Substance: LOVASTATIN
  22. NEXIUM [Suspect]
     Active Substance: ESOMEPRAZOLE MAGNESIUM
     Dosage: 40.0MG UNKNOWN
     Route: 048
     Dates: start: 200906
  23. NEXIUM [Suspect]
     Active Substance: ESOMEPRAZOLE MAGNESIUM
     Dosage: 40.0MG UNKNOWN
     Route: 048
     Dates: start: 201303, end: 201305
  24. LOVASTATIN. [Concomitant]
     Active Substance: LOVASTATIN
  25. HYZAAR [Concomitant]
     Active Substance: HYDROCHLOROTHIAZIDE\LOSARTAN POTASSIUM
  26. GLIPIZIDE. [Concomitant]
     Active Substance: GLIPIZIDE
  27. HUMALOG [Concomitant]
     Active Substance: INSULIN LISPRO
  28. LASIX [Concomitant]
     Active Substance: FUROSEMIDE
  29. LISINOPRIL. [Concomitant]
     Active Substance: LISINOPRIL
  30. FENOFIBRATE. [Concomitant]
     Active Substance: FENOFIBRATE
  31. LISINOPRIL. [Concomitant]
     Active Substance: LISINOPRIL
  32. ROPINIROLE HCL [Concomitant]
     Active Substance: ROPINIROLE HYDROCHLORIDE
  33. TRAMADOL. [Concomitant]
     Active Substance: TRAMADOL
  34. FUROSEMIDE. [Concomitant]
     Active Substance: FUROSEMIDE
  35. LYRICA [Concomitant]
     Active Substance: PREGABALIN
  36. ROPINIROLE. [Concomitant]
     Active Substance: ROPINIROLE
  37. DETROL [Concomitant]
     Active Substance: TOLTERODINE TARTRATE
  38. PRAVASTATIN. [Concomitant]
     Active Substance: PRAVASTATIN
  39. ROPINIROLE. [Concomitant]
     Active Substance: ROPINIROLE

REACTIONS (6)
  - End stage renal disease [Unknown]
  - Hyperparathyroidism secondary [Unknown]
  - Renal tubular necrosis [Unknown]
  - Renal failure [Unknown]
  - Chronic kidney disease [Not Recovered/Not Resolved]
  - Nephrogenic anaemia [Unknown]

NARRATIVE: CASE EVENT DATE: 20141122
